FAERS Safety Report 9439394 (Version 2)
Quarter: 2013Q4

REPORT INFORMATION
  Report Type: Spontaneous
  Country: US (occurrence: US)
  Receive Date: 20130805
  Receipt Date: 20131104
  Transmission Date: 20140711
  Serious: Yes (Hospitalization)
  Sender: FDA-Public Use
  Company Number: US-BIOGENIDEC-2013BI070070

PATIENT
  Age: 78 Year
  Sex: Female

DRUGS (2)
  1. AVONEX [Suspect]
     Indication: MULTIPLE SCLEROSIS
     Route: 030
     Dates: start: 200405, end: 20130601
  2. AVONEX [Suspect]
     Indication: MULTIPLE SCLEROSIS
     Route: 030
     Dates: start: 20130728

REACTIONS (6)
  - Diverticulitis [Unknown]
  - Abdominal pain upper [Recovered/Resolved]
  - Pulmonary oedema [Recovered/Resolved]
  - Cardiac disorder [Unknown]
  - Vomiting [Recovered/Resolved]
  - Multiple sclerosis relapse [Unknown]
